FAERS Safety Report 5692637-7 (Version None)
Quarter: 2008Q2

REPORT INFORMATION
  Report Type: 
  Country: None (occurrence: None)
  Receive Date: 20080401
  Receipt Date: 20080321
  Transmission Date: 20081010
  Serious: Yes (Other)
  Sender: FDA-Public Use
  Company Number: 2008US000858

PATIENT
  Age: 4 Year
  Sex: Female

DRUGS (2)
  1. PROGRAF [Suspect]
     Indication: LIVER TRANSPLANT
  2. CORTICOSTEROID NOS (CORTICOSTEROID NOS) [Concomitant]

REACTIONS (19)
  - ADENOVIRUS INFECTION [None]
  - BK VIRUS INFECTION [None]
  - BONE MARROW DISORDER [None]
  - BONE MARROW FAILURE [None]
  - COLITIS [None]
  - DISEASE PROGRESSION [None]
  - ENTERITIS [None]
  - HAEMATURIA [None]
  - INTESTINAL OBSTRUCTION [None]
  - INTESTINAL PERFORATION [None]
  - KLEBSIELLA BACTERAEMIA [None]
  - LYMPHADENOPATHY [None]
  - LYMPHOPROLIFERATIVE DISORDER [None]
  - MESENTERIC FIBROSIS [None]
  - METASTASES TO LUNG [None]
  - NEUTROPENIA [None]
  - PYREXIA [None]
  - SEPSIS [None]
  - THROMBOCYTOPENIA [None]
